FAERS Safety Report 17312535 (Version 1)
Quarter: 2020Q1

REPORT INFORMATION
  Report Type: Spontaneous
  Country: US (occurrence: US)
  Receive Date: 20200123
  Receipt Date: 20200123
  Transmission Date: 20200409
  Serious: No
  Sender: FDA-Public Use
  Company Number: NVSC2020US015371

PATIENT
  Sex: Male

DRUGS (1)
  1. HYDROCORTISONE,NEOMYCIN,POLYMYCIN B SULPHATE [Suspect]
     Active Substance: HYDROCORTISONE\NEOMYCIN\POLYMYXIN B SULFATE
     Indication: PRODUCT USED FOR UNKNOWN INDICATION
     Dosage: 10 ML, TID (5 DROPS)
     Route: 065
     Dates: start: 20200115

REACTIONS (1)
  - Ear pain [Unknown]
